FAERS Safety Report 9455982 (Version 1)
Quarter: 2013Q3

REPORT INFORMATION
  Report Type: Spontaneous
  Country: ES (occurrence: None)
  Receive Date: 20130808
  Receipt Date: 20130808
  Transmission Date: 20140515
  Serious: Yes (Hospitalization, Other)
  Sender: FDA-Public Use
  Company Number: 1732661

PATIENT
  Age: 48 Year
  Sex: Male

DRUGS (1)
  1. PACLITAXEL [Suspect]
     Indication: LUNG NEOPLASM MALIGNANT
     Dosage: (NOT OTHERWISE SPECIFIED)
     Route: 042
     Dates: start: 20121123, end: 20121123

REACTIONS (8)
  - Choking sensation [None]
  - Hyperhidrosis [None]
  - Dyspnoea [None]
  - Rash [None]
  - Erythema [None]
  - Nausea [None]
  - Flushing [None]
  - Feeling hot [None]
